FAERS Safety Report 5599706-0 (Version None)
Quarter: 2008Q1

REPORT INFORMATION
  Report Type: 
  Country: None (occurrence: None)
  Receive Date: 20080118
  Receipt Date: 20080118
  Transmission Date: 20080703
  Serious: Yes (Disabling)
  Sender: FDA-Public Use
  Company Number: None

PATIENT
  Age: 70 Year
  Sex: Female
  Weight: 106 kg

DRUGS (14)
  1. FUROSEMIDE [Suspect]
     Indication: CARDIAC FAILURE CONGESTIVE
     Dosage: 80-140MG IV Q12
     Route: 042
     Dates: start: 20070907, end: 20071025
  2. LORAZEPAM [Concomitant]
  3. METOLAZONE [Concomitant]
  4. LABETALOL HCL [Concomitant]
  5. LISINOPRIL [Concomitant]
  6. ATORVASTATIN [Concomitant]
  7. METOPROLOL TARTRATE [Concomitant]
  8. LANSOPRAZOLE [Concomitant]
  9. COLCHICINE [Concomitant]
  10. AMLODIPINE [Concomitant]
  11. DULOXETINE [Concomitant]
  12. SENNA [Concomitant]
  13. DOCUSATE [Concomitant]
  14. BUMETANIDE [Concomitant]

REACTIONS (1)
  - DEAFNESS [None]
